FAERS Safety Report 8552971-X (Version None)
Quarter: 2012Q3

REPORT INFORMATION
  Report Type: 
  Country: None (occurrence: None)
  Receive Date: 20120731
  Receipt Date: 20120723
  Transmission Date: 20120928
  Serious: Yes (Hospitalization)
  Sender: FDA-Public Use
  Company Number: US-ASTELLAS-2012US004094

PATIENT
  Sex: Female

DRUGS (1)
  1. ERLOTINIB HYDROCHLORIDE [Suspect]
     Indication: LUNG CARCINOMA CELL TYPE UNSPECIFIED STAGE 0
     Dosage: 150 MG, UID/QD
     Route: 048
     Dates: start: 20120405

REACTIONS (9)
  - DERMATITIS ACNEIFORM [None]
  - DYSPNOEA [None]
  - CONSTIPATION [None]
  - EYE IRRITATION [None]
  - DYSGEUSIA [None]
  - FACIAL PAIN [None]
  - REGURGITATION [None]
  - GLOSSODYNIA [None]
  - DRY EYE [None]
